FAERS Safety Report 10901809 (Version 3)
Quarter: 2015Q1

REPORT INFORMATION
  Report Type: Spontaneous
  Country: DE (occurrence: DE)
  Receive Date: 20150310
  Receipt Date: 20150331
  Transmission Date: 20150721
  Serious: Yes (Death, Other)
  Sender: FDA-Public Use
  Company Number: DE-BAYER-2015-034666

PATIENT
  Age: 47 Year
  Sex: Female
  Weight: 80 kg

DRUGS (3)
  1. ULTRAVIST [Suspect]
     Active Substance: IOPROMIDE
     Indication: NEUROLOGICAL EXAMINATION
     Dosage: 100 ML, ONCE
     Route: 042
  2. ULTRAVIST [Suspect]
     Active Substance: IOPROMIDE
     Indication: HEADACHE
  3. L-THYROXIN [Concomitant]
     Active Substance: LEVOTHYROXINE SODIUM
     Indication: BASEDOW^S DISEASE
     Dosage: UNK

REACTIONS (13)
  - Nausea [Fatal]
  - Unevaluable event [Fatal]
  - Dyskinesia [Fatal]
  - Respiratory arrest [Fatal]
  - Convulsions local [Fatal]
  - Posture abnormal [Fatal]
  - Malaise [Fatal]
  - Cardiac arrest [Fatal]
  - Restlessness [Fatal]
  - Seizure [Fatal]
  - Strabismus [Fatal]
  - Mydriasis [Fatal]
  - Anaphylactic reaction [Fatal]

NARRATIVE: CASE EVENT DATE: 20150304
